FAERS Safety Report 18436202 (Version 1)
Quarter: 2020Q4

REPORT INFORMATION
  Report Type: Spontaneous
  Country: US (occurrence: US)
  Receive Date: 20201028
  Receipt Date: 20201028
  Transmission Date: 20210114
  Serious: Yes (Hospitalization)
  Sender: FDA-Public Use
  Company Number: None

PATIENT
  Age: 85 Year
  Sex: Male
  Weight: 97 kg

DRUGS (2)
  1. REMDESIVIR. [Suspect]
     Active Substance: REMDESIVIR
     Indication: COVID-19
     Route: 042
  2. REMDESIVIR. [Concomitant]
     Active Substance: REMDESIVIR
     Dates: start: 20201027, end: 20201027

REACTIONS (5)
  - Body temperature increased [None]
  - Dyspnoea [None]
  - Oxygen saturation decreased [None]
  - Cyanosis [None]
  - Respiratory rate increased [None]

NARRATIVE: CASE EVENT DATE: 20201027
